FAERS Safety Report 4839100-0 (Version None)
Quarter: 2005Q4

REPORT INFORMATION
  Report Type: 
  Country: None (occurrence: None)
  Receive Date: 20051129
  Receipt Date: 20051006
  Transmission Date: 20060501
  Serious: Yes (Other)
  Sender: FDA-Public Use
  Company Number: 2005SE05207

PATIENT
  Age: 43 Year
  Sex: Female
  Weight: 65 kg

DRUGS (8)
  1. LAMICTAL [Suspect]
  2. SEROQUEL [Suspect]
     Dosage: 300MG PER DAY
  3. LITAREX [Suspect]
  4. DICLOCIL [Concomitant]
     Indication: ABSCESS
  5. ROXITHROMYCIN [Concomitant]
  6. ANTABUSE [Concomitant]
     Route: 065
  7. ACETAMINOPHEN [Concomitant]
     Route: 065
  8. NITRAZEPAM [Concomitant]
     Route: 065

REACTIONS (4)
  - CHEST PAIN [None]
  - FLUSHING [None]
  - PHARYNGEAL OEDEMA [None]
  - PRURITUS [None]
